FAERS Safety Report 6263743-3 (Version None)
Quarter: 2009Q3

REPORT INFORMATION
  Report Type: 
  Country: None (occurrence: None)
  Receive Date: 20090710
  Receipt Date: 20090628
  Transmission Date: 20100115
  Serious: Yes (Other)
  Sender: FDA-Public Use
  Company Number: PHHY2009CA24661

PATIENT
  Sex: Female

DRUGS (3)
  1. DIOVAN HCT [Suspect]
     Dosage: 160/12.5 MG 1 TABLET DAILY
     Route: 048
  2. RASILEZ [Concomitant]
     Dosage: 150 MG, UNK
  3. ANTIBIOTICS [Concomitant]

REACTIONS (4)
  - ANXIETY [None]
  - BLOOD PRESSURE INCREASED [None]
  - IRRITABILITY [None]
  - MENTAL DISORDER [None]
